FAERS Safety Report 9707747 (Version 1)
Quarter: 2013Q4

REPORT INFORMATION
  Report Type: Spontaneous
  Country: JP (occurrence: JP)
  Receive Date: 20131125
  Receipt Date: 20131125
  Transmission Date: 20140711
  Serious: Yes (Other)
  Sender: FDA-Public Use
  Company Number: JP-PFIZER INC-2013332974

PATIENT
  Age: 58 Year
  Sex: Female

DRUGS (4)
  1. EPIRUBICIN HCL [Suspect]
     Indication: INVASIVE DUCTAL BREAST CARCINOMA
     Dosage: 90 MG/M2, CYCLIC (4 CYCLES WITH DTX)
  2. DOCETAXEL [Concomitant]
     Indication: INVASIVE DUCTAL BREAST CARCINOMA
     Dosage: 75 MG/M2, CYCLIC  (4 CYCLES WITH CPA)
  3. CYCLOPHOSPHAMIDE [Concomitant]
     Indication: INVASIVE DUCTAL BREAST CARCINOMA
     Dosage: 600 MG/M2, CYCLIC (4 CYCLES WITH DTX)
  4. CYCLOPHOSPHAMIDE [Concomitant]
     Dosage: 600 MG/M2, CYCLIC (4 CYCLES WITH EPI)

REACTIONS (1)
  - Cardiac sarcoidosis [Unknown]
